FAERS Safety Report 5318452-1 (Version None)
Quarter: 2007Q2

REPORT INFORMATION
  Report Type: 
  Country: None (occurrence: None)
  Receive Date: 20070430
  Receipt Date: 20070412
  Transmission Date: 20071010
  Serious: Yes (Other)
  Sender: FDA-Public Use
  Company Number: 2006EU000193

PATIENT
  Age: 71 Year
  Sex: Female
  Weight: 52 kg

DRUGS (3)
  1. PROGRAF [Suspect]
     Indication: RENAL TRANSPLANT
     Dosage: SEE IMAGE
     Route: 048
  2. FUMAGILLIN [Suspect]
     Indication: MICROSPORIDIA INFECTION
     Dosage: 20 MG, TID
  3. CORTICOSTEROIDS [Concomitant]

REACTIONS (6)
  - ANAEMIA [None]
  - DRUG INTERACTION [None]
  - DRUG LEVEL DECREASED [None]
  - MICROSPORIDIA INFECTION [None]
  - THROMBOCYTOPENIA [None]
  - WEIGHT DECREASED [None]
